FAERS Safety Report 18724357 (Version 1)
Quarter: 2021Q1

REPORT INFORMATION
  Report Type: Spontaneous
  Country: US (occurrence: US)
  Receive Date: 20210111
  Receipt Date: 20210111
  Transmission Date: 20210419
  Serious: Yes (Hospitalization)
  Sender: FDA-Public Use
  Company Number: None

PATIENT
  Age: 89 Year
  Sex: Male
  Weight: 72.12 kg

DRUGS (1)
  1. APIXABAN (APIXABAN 2.5MG TAB) [Suspect]
     Active Substance: APIXABAN
     Dosage: ?          OTHER DOSE:1 TAB;?
     Route: 048
     Dates: start: 20191011, end: 20201024

REACTIONS (4)
  - Blood loss anaemia [None]
  - Therapy cessation [None]
  - Haematuria [None]
  - Urinary retention [None]

NARRATIVE: CASE EVENT DATE: 20201024
